FAERS Safety Report 10891287 (Version 1)
Quarter: 2015Q1

REPORT INFORMATION
  Report Type: Spontaneous
  Country: FR (occurrence: FR)
  Receive Date: 20150306
  Receipt Date: 20150306
  Transmission Date: 20150721
  Serious: Yes (Hospitalization)
  Sender: FDA-Public Use
  Company Number: FR-ASTRAZENECA-2015SE19630

PATIENT
  Age: 91 Year
  Sex: Female

DRUGS (6)
  1. ACEBUTOLOL [Suspect]
     Active Substance: ACEBUTOLOL
     Route: 048
  2. LAMALINE [Suspect]
     Active Substance: ACETAMINOPHEN\CAFFEINE\OPIUM
     Route: 048
  3. MICARDIS [Suspect]
     Active Substance: TELMISARTAN
     Route: 048
  4. LASILIX [Suspect]
     Active Substance: FUROSEMIDE
     Route: 048
  5. INEXIUM [Suspect]
     Active Substance: ESOMEPRAZOLE
     Route: 048
  6. COUMADINE [Suspect]
     Active Substance: WARFARIN SODIUM
     Route: 048

REACTIONS (2)
  - Haematoma [Recovered/Resolved]
  - Vertigo [Recovered/Resolved]

NARRATIVE: CASE EVENT DATE: 20140621
